FAERS Safety Report 8029234-4 (Version None)
Quarter: 2012Q1

REPORT INFORMATION
  Report Type: 
  Country: None (occurrence: None)
  Receive Date: 20120106
  Receipt Date: 20120105
  Transmission Date: 20120608
  Serious: Yes (Disabling, Other)
  Sender: FDA-Public Use
  Company Number: PHHY2012IT000902

PATIENT
  Sex: Female

DRUGS (4)
  1. ZOMETA [Suspect]
     Route: 042
     Dates: start: 20110301
  2. PLATINUM COMPOUNDS [Concomitant]
     Route: 065
  3. GEMCITABINE [Concomitant]
     Indication: LUNG NEOPLASM MALIGNANT
     Route: 065
  4. ZOMETA [Suspect]
     Indication: METASTASES TO BONE
     Route: 042
     Dates: start: 20091201

REACTIONS (2)
  - EXPOSED BONE IN JAW [None]
  - OSTEONECROSIS OF JAW [None]
